FAERS Safety Report 25423202 (Version 2)
Quarter: 2025Q3

REPORT INFORMATION
  Report Type: Spontaneous
  Country: GB (occurrence: GB)
  Receive Date: 20250611
  Receipt Date: 20250714
  Transmission Date: 20251020
  Serious: Yes (Life-Threatening)
  Sender: MYLAN
  Company Number: GB-MYLANLABS-2025M1048206

PATIENT

DRUGS (1)
  1. EPIPEN [Suspect]
     Active Substance: EPINEPHRINE
     Indication: Food allergy

REACTIONS (5)
  - Drug dose omission by device [Unknown]
  - Device failure [Unknown]
  - Device malfunction [Unknown]
  - Illness [Unknown]
  - Psychological trauma [Unknown]
